FAERS Safety Report 12874389 (Version 1)
Quarter: 2016Q4

REPORT INFORMATION
  Report Type: Spontaneous
  Country: BR (occurrence: BR)
  Receive Date: 20161021
  Receipt Date: 20161021
  Transmission Date: 20170207
  Serious: Yes (Other)
  Sender: FDA-Public Use
  Company Number: BR-ABBVIE-16P-020-1750645-00

PATIENT
  Age: 12 Year
  Sex: Male
  Weight: 53 kg

DRUGS (2)
  1. DEPAKENE [Suspect]
     Active Substance: VALPROIC ACID
     Dosage: THE PHYSICIAN ALSO PRESCRIBED DEPAKENE AGAIN
     Route: 048
  2. DEPAKENE [Suspect]
     Active Substance: VALPROIC ACID
     Indication: MIGRAINE
     Dosage: DAILY DOSE: 250 MG AT NIGHT
     Route: 048
     Dates: start: 20160910, end: 20160912

REACTIONS (14)
  - Rash [Not Recovered/Not Resolved]
  - Constipation [Not Recovered/Not Resolved]
  - Off label use [Unknown]
  - Product use issue [Unknown]
  - Nausea [Recovered/Resolved]
  - Poisoning [Not Recovered/Not Resolved]
  - Mass [Not Recovered/Not Resolved]
  - Oral discomfort [Not Recovered/Not Resolved]
  - Abdominal discomfort [Not Recovered/Not Resolved]
  - Vomiting [Recovered/Resolved]
  - Abdominal pain [Not Recovered/Not Resolved]
  - Pyrexia [Not Recovered/Not Resolved]
  - Product physical issue [Unknown]
  - Hypophagia [Not Recovered/Not Resolved]

NARRATIVE: CASE EVENT DATE: 20160910
